FAERS Safety Report 7051656-9 (Version None)
Quarter: 2010Q4

REPORT INFORMATION
  Report Type: 
  Country: None (occurrence: None)
  Receive Date: 20101018
  Receipt Date: 20101018
  Transmission Date: 20110411
  Serious: Yes (Other)
  Sender: FDA-Public Use
  Company Number: None

PATIENT
  Age: 57 Year
  Sex: Female
  Weight: 71.6683 kg

DRUGS (1)
  1. BUPROPIAN XL 150 WATSON [Suspect]
     Indication: DEPRESSION
     Dosage: 1 IN AM 1 DAILY PO
     Route: 048
     Dates: start: 20101009, end: 20101015

REACTIONS (1)
  - DEPRESSION [None]
